FAERS Safety Report 18137280 (Version 2)
Quarter: 2020Q3

REPORT INFORMATION
  Report Type: Spontaneous
  Country: US (occurrence: US)
  Receive Date: 20200812
  Receipt Date: 20200821
  Transmission Date: 20201103
  Serious: No
  Sender: FDA-Public Use
  Company Number: US-GLAXOSMITHKLINE-US2020AMR155663

PATIENT
  Sex: Female

DRUGS (1)
  1. ZEJULA [Suspect]
     Active Substance: NIRAPARIB
     Indication: OVARIAN CANCER
     Dosage: UNK
     Route: 048
     Dates: start: 20200801

REACTIONS (5)
  - Skin discolouration [Recovering/Resolving]
  - Blood glucose increased [Unknown]
  - Adverse drug reaction [Unknown]
  - Peripheral swelling [Recovering/Resolving]
  - Constipation [Unknown]
